FAERS Safety Report 8770780 (Version 2)
Quarter: 2013Q4

REPORT INFORMATION
  Report Type: Spontaneous
  Country: FR (occurrence: FR)
  Receive Date: 20120906
  Receipt Date: 20131031
  Transmission Date: 20140711
  Serious: Yes (Other)
  Sender: FDA-Public Use
  Company Number: FR-009507513-1208FRA010947

PATIENT
  Age: 66 Year
  Sex: Male

DRUGS (4)
  1. ESMERON [Suspect]
     Indication: INDUCTION OF ANAESTHESIA
     Dosage: 1 DF, ONCE
     Route: 042
     Dates: start: 20090224
  2. PROPOFOL [Concomitant]
     Indication: INDUCTION OF ANAESTHESIA
     Dosage: 1 DF, ONCE
     Route: 042
     Dates: start: 20090224
  3. KETAMINE PANPHARMA [Concomitant]
     Indication: INDUCTION OF ANAESTHESIA
     Dosage: 1 DF, ONCE
     Route: 042
     Dates: start: 20090224
  4. SUFENTA [Concomitant]
     Indication: INDUCTION OF ANAESTHESIA
     Dosage: 1 DF, ONCE
     Dates: start: 20090224

REACTIONS (2)
  - Anaphylactic reaction [Recovered/Resolved]
  - Skin test positive [Unknown]
